FAERS Safety Report 18925496 (Version 1)
Quarter: 2021Q1

REPORT INFORMATION
  Report Type: Spontaneous
  Country: US (occurrence: US)
  Receive Date: 20210222
  Receipt Date: 20210222
  Transmission Date: 20210420
  Serious: No
  Sender: FDA-Public Use
  Company Number: US-ELI_LILLY_AND_COMPANY-US202102006019

PATIENT
  Age: 47 Year
  Sex: Female

DRUGS (2)
  1. GALCANEZUMAB 120MG [Suspect]
     Active Substance: GALCANEZUMAB
     Indication: PRODUCT USED FOR UNKNOWN INDICATION
     Dosage: 120 MG, MONTHLY (1/M)
     Route: 058
  2. REYVOW [Concomitant]
     Active Substance: LASMIDITAN
     Indication: HEREDITARY ANGIOEDEMA
     Dosage: 200 MG, PRN

REACTIONS (2)
  - Dizziness [Unknown]
  - Fatigue [Unknown]
